FAERS Safety Report 26005339 (Version 1)
Quarter: 2025Q4

REPORT INFORMATION
  Report Type: Spontaneous
  Country: EU (occurrence: EU)
  Receive Date: 20251106
  Receipt Date: 20251106
  Transmission Date: 20260117
  Serious: Yes (Other)
  Sender: GILEAD
  Company Number: None

PATIENT
  Age: 60 Year
  Sex: Female
  Weight: 68 kg

DRUGS (1)
  1. TRODELVY [Suspect]
     Active Substance: SACITUZUMAB GOVITECAN-HZIY
     Indication: Neoplasm malignant
     Dosage: 1 DOSAGE FORM, ONCE (10MG/KG)
     Route: 042
     Dates: start: 20230619

REACTIONS (1)
  - Pancreatic disorder [Unknown]

NARRATIVE: CASE EVENT DATE: 20230827
